FAERS Safety Report 8948626 (Version 2)
Quarter: 2012Q4

REPORT INFORMATION
  Report Type: 
  Country: ES (occurrence: ES)
  Receive Date: 20121206
  Receipt Date: 20121218
  Transmission Date: 20130627
  Serious: Yes (Hospitalization, Other)
  Sender: FDA-Public Use
  Company Number: PHHY2012ES109280

PATIENT
  Age: 51 Year
  Sex: Female

DRUGS (3)
  1. LEPONEX [Suspect]
     Indication: SCHIZOPHRENIA
     Dosage: 250 mg, Every 8 Hour
     Route: 048
     Dates: start: 20120314, end: 20120510
  2. CYMBALTA [Suspect]
     Indication: DEPRESSION
     Dosage: 150 mg, Every 8 Hour
     Route: 048
     Dates: start: 20120307, end: 20120413
  3. MOVICOL [Concomitant]
     Indication: CONSTIPATION
     Dosage: UNK UKN, Every 8 Hour
     Route: 048
     Dates: start: 20120409

REACTIONS (7)
  - Hepatic failure [Recovered/Resolved]
  - Alanine aminotransferase increased [Recovered/Resolved]
  - Aspartate aminotransferase increased [Recovered/Resolved]
  - Blood bilirubin increased [Recovered/Resolved]
  - Cholelithiasis [Unknown]
  - Lymphadenopathy [Unknown]
  - Localised intraabdominal fluid collection [Unknown]
